FAERS Safety Report 8608542-X (Version None)
Quarter: 2012Q3

REPORT INFORMATION
  Report Type: 
  Country: None (occurrence: None)
  Receive Date: 20120806
  Receipt Date: 20120723
  Transmission Date: 20120928
  Serious: Yes (Life-Threatening, Other)
  Sender: FDA-Public Use
  Company Number: DSA_58716_2012

PATIENT
  Age: 55 Year
  Sex: Male

DRUGS (3)
  1. METRONIDAZOLE [Suspect]
     Indication: TOOTH ABSCESS
     Dosage: DF
     Dates: start: 20120611, end: 20120616
  2. AMOXICILLIN [Suspect]
     Indication: TOOTH ABSCESS
     Dosage: DF
     Dates: start: 20120606, end: 20120616
  3. OMEPRAZOLE [Concomitant]

REACTIONS (1)
  - CLOSTRIDIAL INFECTION [None]
